FAERS Safety Report 9723449 (Version 1)
Quarter: 2013Q4

REPORT INFORMATION
  Report Type: Spontaneous
  Country: US (occurrence: US)
  Receive Date: 20131202
  Receipt Date: 20131202
  Transmission Date: 20140711
  Serious: Yes (Other)
  Sender: FDA-Public Use
  Company Number: US-PFIZER INC-2013341718

PATIENT
  Age: 49 Year
  Sex: Male
  Weight: 82.09 kg

DRUGS (8)
  1. LYRICA [Suspect]
     Indication: ANXIETY
     Dosage: 50 MG, 2X/DAY
     Route: 048
  2. LYRICA [Suspect]
     Dosage: 150 MG, 2X/DAY
     Route: 048
     Dates: end: 201311
  3. PROZAC [Concomitant]
     Dosage: 40 MG (BY TAKING TWO 20MG), 1X/DAY
     Dates: start: 1987
  4. RITALIN [Concomitant]
     Dosage: UNK, 3X/DAY
  5. AMBIEN [Concomitant]
     Indication: SLEEP DISORDER
     Dosage: UNK
  6. VERAPAMIL [Concomitant]
     Indication: HYPERTENSION
     Dosage: UNK
  7. IMITREX [Concomitant]
     Indication: MIGRAINE
     Dosage: UNK
  8. ULTRAM [Concomitant]
     Indication: MUSCULOSKELETAL CHEST PAIN
     Dosage: UNK, 1X/DAY

REACTIONS (12)
  - Off label use [Unknown]
  - Choking [Unknown]
  - Therapeutic response unexpected [Unknown]
  - Dyspepsia [Unknown]
  - Blood cholesterol abnormal [Unknown]
  - Anaemia [Unknown]
  - Blood potassium decreased [Unknown]
  - Decreased appetite [Unknown]
  - Nervousness [Unknown]
  - Depressed mood [Unknown]
  - Feeling abnormal [Unknown]
  - Anxiety [Unknown]
